FAERS Safety Report 20884701 (Version 2)
Quarter: 2022Q2

REPORT INFORMATION
  Report Type: Spontaneous
  Country: US (occurrence: US)
  Receive Date: 20220527
  Receipt Date: 20220606
  Transmission Date: 20220721
  Serious: Yes (Other)
  Sender: FDA-Public Use
  Company Number: US-PFIZER INC-202200755405

PATIENT
  Age: 88 Year
  Sex: Female

DRUGS (1)
  1. DOXEPIN HCL [Suspect]
     Active Substance: DOXEPIN HYDROCHLORIDE
     Dosage: UNK

REACTIONS (2)
  - Loss of consciousness [Unknown]
  - Drug hypersensitivity [Unknown]
